FAERS Safety Report 9711954 (Version 2)
Quarter: 2014Q1

REPORT INFORMATION
  Report Type: Spontaneous
  Country: US (occurrence: US)
  Receive Date: 20131126
  Receipt Date: 20140205
  Transmission Date: 20141002
  Serious: No
  Sender: FDA-Public Use
  Company Number: US-PFIZER INC-2013333312

PATIENT
  Age: 70 Year
  Sex: Male

DRUGS (3)
  1. LYRICA [Suspect]
     Indication: CONGENITAL NEUROPATHY
     Dosage: 300 MG, 1X/DAY
     Dates: start: 2013
  2. LYRICA [Interacting]
     Indication: NEURALGIA
  3. TARGIN [Interacting]
     Dosage: 120 MG, 1X/DAY

REACTIONS (6)
  - Pain [Unknown]
  - Coordination abnormal [Unknown]
  - Cognitive disorder [Unknown]
  - Drug ineffective [Unknown]
  - Drug interaction [Unknown]
  - Impaired driving ability [Unknown]
